FAERS Safety Report 14474998 (Version 8)
Quarter: 2018Q2

REPORT INFORMATION
  Report Type: Spontaneous
  Country: HU (occurrence: HU)
  Receive Date: 20180201
  Receipt Date: 20180509
  Transmission Date: 20180711
  Serious: Yes (Life-Threatening, Hospitalization, Other)
  Sender: FDA-Public Use
  Company Number: HU-PFIZER INC-2018040254

PATIENT
  Age: 39 Year
  Sex: Female
  Weight: 65 kg

DRUGS (15)
  1. MILURIT [Concomitant]
     Active Substance: ALLOPURINOL
     Dosage: UNK
     Route: 048
     Dates: start: 20140129
  2. ZAVEDOS [Suspect]
     Active Substance: IDARUBICIN
     Indication: ACUTE MYELOID LEUKAEMIA
     Dosage: 14 MG ON DAYS 1-3 AT FLAG-IDA
     Route: 042
     Dates: start: 201401
  3. ZAVEDOS [Suspect]
     Active Substance: IDARUBICIN
     Dosage: UNK
     Dates: start: 20140129, end: 20140131
  4. ALEXAN /00146201/ [Suspect]
     Active Substance: CYTARABINE
     Indication: ACUTE MYELOID LEUKAEMIA
     Dosage: 190 MG, AS INDUCTION THERAPY (7+3, RECEIVED FOR 7 DAYS IN FORM OF 24 HOUR INFUSION)
     Route: 042
     Dates: start: 201203
  5. ALEXAN /00146201/ [Suspect]
     Active Substance: CYTARABINE
     Dosage: 5.5 G TWICE DAILY ON DAYS 1. 3. 5 (REINDUCTION BISHOP THERAPY, HIGH DOSE)
     Route: 042
     Dates: start: 201204
  6. FLUDARA [Suspect]
     Active Substance: FLUDARABINE PHOSPHATE
     Dosage: UNK, 1X/DAY
     Dates: start: 20140129, end: 20140131
  7. ALEXAN /00146201/ [Suspect]
     Active Substance: CYTARABINE
     Dosage: 3.4 G ON DAYS 1-5 AT FLAG-IDA
     Route: 042
     Dates: start: 201401
  8. FLUDARA [Suspect]
     Active Substance: FLUDARABINE PHOSPHATE
     Indication: ACUTE MYELOID LEUKAEMIA
     Dosage: 50 MG ON DAYS 1-5, FLAG-IDA
     Route: 042
     Dates: start: 201401
  9. ALEXAN /00146201/ [Suspect]
     Active Substance: CYTARABINE
     Dosage: UNK, 1X/DAY
     Dates: start: 20140129, end: 20140131
  10. SUMETROLIM [Concomitant]
     Active Substance: SULFAMETHOXAZOLE\TRIMETHOPRIM
     Dosage: UNK
     Dates: start: 20140129, end: 20140131
  11. DAUNOBLASTINA [Suspect]
     Active Substance: DAUNORUBICIN
     Indication: ACUTE MYELOID LEUKAEMIA
     Dosage: 110 MG AS INDUCTION THERAPY (7 + 3 FOR 3 DAYS)
     Route: 042
     Dates: start: 201203
  12. DOXORUBICIN HCL [Suspect]
     Active Substance: DOXORUBICIN HYDROCHLORIDE
     Indication: ACUTE MYELOID LEUKAEMIA
     Dosage: 90 MG ON DAYS 2.4. (REINDUCTION BISHOP THERAPY)
     Route: 042
     Dates: start: 201204
  13. ACICLOVIR [Concomitant]
     Active Substance: ACYCLOVIR
     Dosage: UNK
     Dates: start: 20140129, end: 20140131
  14. AMOXICILLIN. [Suspect]
     Active Substance: AMOXICILLIN
     Dosage: UNK
     Dates: start: 20140129, end: 20140131
  15. ALEXAN /00146201/ [Suspect]
     Active Substance: CYTARABINE
     Dosage: 5.4 G TWICE DAILY ON THE DAYS 1. 3. 5. (HDA AT AS CONSOLIDATION, HIGH DOSE HAD)
     Route: 042
     Dates: start: 201205

REACTIONS (7)
  - Respiratory failure [Recovered/Resolved]
  - Febrile neutropenia [Recovered/Resolved]
  - Tumour lysis syndrome [Recovered/Resolved]
  - Neoplasm recurrence [Unknown]
  - Bronchopulmonary aspergillosis [Recovered/Resolved]
  - Pyrexia [Recovered/Resolved]
  - Disease recurrence [Recovered/Resolved]

NARRATIVE: CASE EVENT DATE: 20120419
